FAERS Safety Report 9681597 (Version 1)
Quarter: 2013Q4

REPORT INFORMATION
  Report Type: Spontaneous
  Country: BR (occurrence: BR)
  Receive Date: 20131111
  Receipt Date: 20131111
  Transmission Date: 20140711
  Serious: Yes (Other)
  Sender: FDA-Public Use
  Company Number: BR-PFIZER INC-2013318628

PATIENT
  Age: 59 Year
  Sex: Female
  Weight: 72 kg

DRUGS (1)
  1. CELEBRA [Suspect]
     Indication: BURSITIS
     Dosage: 200 MG (1 CAPSULE), 2X/DAY (EVERY 12 HOURS)
     Route: 048
     Dates: start: 20121106

REACTIONS (2)
  - Ankylosing spondylitis [Unknown]
  - Tendonitis [Unknown]
